FAERS Safety Report 15700526 (Version 1)
Quarter: 2018Q4

REPORT INFORMATION
  Report Type: Spontaneous
  Country: US (occurrence: US)
  Receive Date: 20181207
  Receipt Date: 20181207
  Transmission Date: 20190205
  Serious: Yes (Other)
  Sender: FDA-Public Use
  Company Number: US-SUNOVION-2018SUN004704

PATIENT
  Sex: Female
  Weight: 63.49 kg

DRUGS (2)
  1. LATUDA [Suspect]
     Active Substance: LURASIDONE HYDROCHLORIDE
     Indication: BIPOLAR II DISORDER
     Dosage: 40 MG, QD EVENING WITH FOOD SINCE 1 MONTH
     Route: 048
     Dates: start: 201811
  2. LITHIUM ASPARTAT [Concomitant]
     Dosage: 300 MG, TID
     Route: 048

REACTIONS (4)
  - Amnesia [Not Recovered/Not Resolved]
  - Off label use [Unknown]
  - Loss of consciousness [Not Recovered/Not Resolved]
  - Feeling abnormal [Unknown]
